FAERS Safety Report 8411653 (Version 2)
Quarter: 2013Q4

REPORT INFORMATION
  Report Type: Report from Study
  Country: US (occurrence: US)
  Receive Date: 20120217
  Receipt Date: 20131218
  Transmission Date: 20140711
  Serious: Yes (Hospitalization, Other)
  Sender: FDA-Public Use
  Company Number: US-ACTELION-A-US2012-60793

PATIENT
  Age: 67 Year
  Sex: Female

DRUGS (9)
  1. TRACLEER [Suspect]
     Indication: PULMONARY ARTERIAL HYPERTENSION
     Dosage: 125 MG, BID
     Route: 048
     Dates: start: 200204, end: 20110404
  2. REVATIO [Concomitant]
  3. COUMADIN [Concomitant]
  4. FLOLAN [Concomitant]
  5. ALPRAZOLAM [Concomitant]
  6. LASIX [Concomitant]
  7. HYDROCODONE [Concomitant]
  8. OMEPRAZOLE [Concomitant]
  9. SERTRALINE [Concomitant]

REACTIONS (3)
  - Liver function test abnormal [Recovered/Resolved with Sequelae]
  - Pancreatic neoplasm [Not Recovered/Not Resolved]
  - Chest pain [Not Recovered/Not Resolved]
